FAERS Safety Report 16615549 (Version 1)
Quarter: 2019Q3

REPORT INFORMATION
  Report Type: Report from Study
  Country: AR (occurrence: AR)
  Receive Date: 20190723
  Receipt Date: 20190723
  Transmission Date: 20191004
  Serious: Yes (Life-Threatening, Other)
  Sender: FDA-Public Use
  Company Number: AR-ACCORD-141180

PATIENT
  Sex: Female

DRUGS (1)
  1. CISPLATIN. [Suspect]
     Active Substance: CISPLATIN
     Indication: CERVIX CARCINOMA
     Dosage: MAXIMUM DOSE OF 70 MG, ONCE A WEEK FOR FIVE CYCLES, RESUMED AFTER GRADE 1

REACTIONS (2)
  - Septic shock [Recovering/Resolving]
  - Pyometra [Recovering/Resolving]
